FAERS Safety Report 19349439 (Version 1)
Quarter: 2021Q2

REPORT INFORMATION
  Report Type: Spontaneous
  Country: IN (occurrence: IN)
  Receive Date: 20210531
  Receipt Date: 20210531
  Transmission Date: 20210717
  Serious: Yes (Other)
  Sender: FDA-Public Use
  Company Number: IN-LUPIN PHARMACEUTICALS INC.-2021-08104

PATIENT
  Age: 31 Year
  Sex: Male

DRUGS (2)
  1. CLOFAZIMINE [Suspect]
     Active Substance: CLOFAZIMINE
     Indication: LEPROSY
     Dosage: 50 MILLIGRAM, QD
     Route: 065
     Dates: start: 2020
  2. RIFAMPIN. [Suspect]
     Active Substance: RIFAMPIN
     Indication: LEPROSY
     Dosage: 600 MILLIGRAM
     Route: 065
     Dates: start: 2020

REACTIONS (1)
  - Type 1 lepra reaction [Not Recovered/Not Resolved]

NARRATIVE: CASE EVENT DATE: 2020
